FAERS Safety Report 6720616-7 (Version None)
Quarter: 2010Q2

REPORT INFORMATION
  Report Type: 
  Country: None (occurrence: None)
  Receive Date: 20100510
  Receipt Date: 20100426
  Transmission Date: 20101027
  Serious: Yes (Death, Disabling)
  Sender: FDA-Public Use
  Company Number: 2009AC000410

PATIENT
  Age: 82 Year
  Sex: Male

DRUGS (18)
  1. DIGOXIN [Suspect]
     Dosage: QD;PO
     Route: 048
     Dates: start: 20040101, end: 20071001
  2. DIGOXIN [Suspect]
     Dosage: 0.250 MG;QD;PO
     Route: 048
     Dates: start: 20071007, end: 20071011
  3. FUROSEMIDE [Concomitant]
  4. VASOTEC [Concomitant]
  5. NITRO-DUR [Concomitant]
  6. PROSCAR [Concomitant]
  7. BUMEX [Concomitant]
  8. COREG [Concomitant]
  9. DOXAZOSIN MESYLATE [Concomitant]
  10. ADVAIR DISKUS 100/50 [Concomitant]
  11. K-DUR [Concomitant]
  12. IMODIUM [Concomitant]
  13. DOBUTREX [Concomitant]
  14. METOPROLOL TARTRATE [Concomitant]
  15. VESICARE [Concomitant]
  16. COLCHICINE [Concomitant]
  17. MULTIVAITAMIN [Concomitant]
  18. FLOMAX [Concomitant]

REACTIONS (35)
  - ANXIETY [None]
  - ASCITES [None]
  - BLOOD ALKALINE PHOSPHATASE INCREASED [None]
  - BLOOD CALCIUM DECREASED [None]
  - BLOOD URIC ACID INCREASED [None]
  - BRADYCARDIA [None]
  - CARDIAC MURMUR [None]
  - CARDIO-RESPIRATORY ARREST [None]
  - CARDIOMYOPATHY [None]
  - DEMENTIA [None]
  - DYSPNOEA [None]
  - DYSPNOEA EXERTIONAL [None]
  - DYSPNOEA PAROXYSMAL NOCTURNAL [None]
  - ECONOMIC PROBLEM [None]
  - EMOTIONAL DISORDER [None]
  - GENERAL PHYSICAL HEALTH DETERIORATION [None]
  - GENERALISED OEDEMA [None]
  - GOUT [None]
  - MENTAL DISORDER [None]
  - MULTIPLE INJURIES [None]
  - NODAL RHYTHM [None]
  - OEDEMA PERIPHERAL [None]
  - ORTHOPNOEA [None]
  - PAIN [None]
  - PERICARDIAL EFFUSION [None]
  - PLEURAL EFFUSION [None]
  - PNEUMONIA [None]
  - POLLAKIURIA [None]
  - PYURIA [None]
  - QRS AXIS ABNORMAL [None]
  - RENAL CYST [None]
  - RENAL FAILURE ACUTE [None]
  - RENAL FAILURE CHRONIC [None]
  - SUPRAVENTRICULAR EXTRASYSTOLES [None]
  - VENTRICULAR EXTRASYSTOLES [None]
